FAERS Safety Report 25014519 (Version 2)
Quarter: 2025Q1

REPORT INFORMATION
  Report Type: Spontaneous
  Country: US (occurrence: US)
  Receive Date: 20250226
  Receipt Date: 20250331
  Transmission Date: 20250409
  Serious: Yes (Hospitalization, Other)
  Sender: DOMPE FARMACEUTICI
  Company Number: US-FARMAPROD-202408-2807

PATIENT
  Age: 65 Year
  Sex: Male

DRUGS (7)
  1. OXERVATE [Suspect]
     Active Substance: CENEGERMIN-BKBJ
     Indication: Neurotrophic keratopathy
     Route: 047
     Dates: start: 20240628, end: 202408
  2. OXERVATE [Suspect]
     Active Substance: CENEGERMIN-BKBJ
  3. OXERVATE [Suspect]
     Active Substance: CENEGERMIN-BKBJ
  4. AVASTIN [Concomitant]
     Active Substance: BEVACIZUMAB
  5. TOBRAMYCIN [Concomitant]
     Active Substance: TOBRAMYCIN
     Indication: Persistent corneal epithelial defect
     Route: 061
     Dates: start: 20240625, end: 20240723
  6. TOBRAMYCIN [Concomitant]
     Active Substance: TOBRAMYCIN
     Route: 061
     Dates: start: 20240611, end: 20240618
  7. TIMOLOL [Concomitant]
     Active Substance: TIMOLOL
     Dates: start: 20240425

REACTIONS (2)
  - Staphylococcal bacteraemia [Recovered/Resolved]
  - Corneal neovascularisation [Recovering/Resolving]

NARRATIVE: CASE EVENT DATE: 20240711
